FAERS Safety Report 10366090 (Version 1)
Quarter: 2014Q3

REPORT INFORMATION
  Report Type: Report from Study
  Country: US (occurrence: US)
  Receive Date: 20140806
  Receipt Date: 20140806
  Transmission Date: 20150326
  Serious: Yes (Hospitalization)
  Sender: FDA-Public Use
  Company Number: US-BRISTOL-MYERS SQUIBB COMPANY-21250600

PATIENT
  Age: 22 Year
  Sex: Male
  Weight: 79.8 kg

DRUGS (1)
  1. IPILIMUMAB [Suspect]
     Active Substance: IPILIMUMAB
     Indication: HODGKIN^S DISEASE
     Dosage: 10MG/KG,OVER 90MIN ON DAY 1,WKI,WK4,WK7+WK10,?MAINTENANCE:OVER 90MIN Q12 WKS,?RECENT DOSE:9-6-13
     Route: 042
     Dates: start: 20131230

REACTIONS (2)
  - Oedema peripheral [Recovering/Resolving]
  - Weight increased [Recovering/Resolving]

NARRATIVE: CASE EVENT DATE: 20140721
